FAERS Safety Report 9251640 (Version 3)
Quarter: 2014Q3

REPORT INFORMATION
  Report Type: Spontaneous
  Country: US (occurrence: US)
  Receive Date: 20130424
  Receipt Date: 20140827
  Transmission Date: 20150326
  Serious: No
  Sender: FDA-Public Use
  Company Number: US-ASTRAZENECA-2013SE27403

PATIENT
  Age: 16215 Day
  Sex: Female
  Weight: 51.7 kg

DRUGS (27)
  1. GUAIFENESIN. [Concomitant]
     Active Substance: GUAIFENESIN
     Dosage: 100MG/10 ML
     Dates: start: 20100408
  2. ALENDRONATE SODIUM. [Concomitant]
     Active Substance: ALENDRONATE SODIUM
     Dates: start: 20090514
  3. NAPROXEN EC [Concomitant]
     Active Substance: NAPROXEN
     Dates: start: 20090520
  4. METHYLPREDNISOLONE [Concomitant]
     Active Substance: METHYLPREDNISOLONE
     Dates: start: 20090828
  5. SULFAMETHOXAZOLE [Concomitant]
     Active Substance: SULFAMETHOXAZOLE
     Dates: start: 20091208
  6. DIPHENOXYLATE-ATROPINE [Concomitant]
     Dates: start: 20100107
  7. HYDROCODONE ACETAMINOPHEN [Concomitant]
     Active Substance: ACETAMINOPHEN\HYDROCODONE BITARTRATE
     Dates: start: 20100319
  8. DECADRON [Concomitant]
     Active Substance: DEXAMETHASONE
     Route: 030
  9. NEXIUM [Suspect]
     Active Substance: ESOMEPRAZOLE MAGNESIUM
     Indication: GASTROOESOPHAGEAL REFLUX DISEASE
     Route: 048
     Dates: start: 1980, end: 20100628
  10. ACTONEL [Concomitant]
     Active Substance: RISEDRONATE SODIUM
     Dates: start: 20100105
  11. HYDROCODONE ACETAMINOPHEN [Concomitant]
     Active Substance: ACETAMINOPHEN\HYDROCODONE BITARTRATE
     Dosage: 500 MG/5 MG, 1 BY MOUTH EVERY 4(HOUR) TO 6 (HOUR)
     Dates: start: 20100319
  12. PROMETHAZINE VC W/CODEINE [Concomitant]
     Dates: start: 20080212
  13. NEXIUM [Suspect]
     Active Substance: ESOMEPRAZOLE MAGNESIUM
     Indication: GASTROOESOPHAGEAL REFLUX DISEASE
     Route: 048
     Dates: start: 20090402
  14. TREXIMET [Concomitant]
     Active Substance: NAPROXEN SODIUM\SUMATRIPTAN SUCCINATE
     Dosage: 85-800 MG
     Dates: start: 20090514
  15. TRICOR [Concomitant]
     Active Substance: FENOFIBRATE
     Dates: start: 20090514
  16. LORATADINE. [Concomitant]
     Active Substance: LORATADINE
     Dates: start: 20091019
  17. LYRICA [Concomitant]
     Active Substance: PREGABALIN
     Dates: start: 20100329
  18. CYCLOBENZAPRINE [Concomitant]
     Active Substance: CYCLOBENZAPRINE
     Dates: start: 20100331
  19. ULTRAM [Concomitant]
     Active Substance: TRAMADOL HYDROCHLORIDE
     Dosage: THREE TIMES DAILY AS NEEDED
     Dates: start: 20120803
  20. TRILIPIX DR [Concomitant]
     Dates: start: 20091109
  21. SINGULAIR [Concomitant]
     Active Substance: MONTELUKAST SODIUM
     Dates: start: 20080307
  22. TRAMADOL HCL [Concomitant]
     Active Substance: TRAMADOL HYDROCHLORIDE
  23. FOLIC ACID. [Concomitant]
     Active Substance: FOLIC ACID
     Dates: start: 20090402
  24. SUMATRIPTAN SUCCINATE. [Concomitant]
     Active Substance: SUMATRIPTAN SUCCINATE
     Dates: start: 20100304
  25. NEXIUM [Suspect]
     Active Substance: ESOMEPRAZOLE MAGNESIUM
     Indication: GASTROOESOPHAGEAL REFLUX DISEASE
     Dosage: TWO TIMES A DAY OR SOMETIMES THREE TIMES A DAY
     Route: 048
  26. TRAMADOL HCL [Concomitant]
     Active Substance: TRAMADOL HYDROCHLORIDE
     Dosage: THREE TIMES A DAY
  27. VERAMYST [Concomitant]
     Active Substance: FLUTICASONE FUROATE
     Route: 045
     Dates: start: 20091019

REACTIONS (7)
  - Ligament sprain [Unknown]
  - Bone pain [Unknown]
  - Ankle fracture [Unknown]
  - Fibula fracture [Unknown]
  - Osteoporosis [Unknown]
  - Contusion [Unknown]
  - Bone disorder [Unknown]

NARRATIVE: CASE EVENT DATE: 20100704
